FAERS Safety Report 24614672 (Version 2)
Quarter: 2024Q4

REPORT INFORMATION
  Report Type: Spontaneous
  Country: US (occurrence: US)
  Receive Date: 20241113
  Receipt Date: 20241114
  Transmission Date: 20250115
  Serious: No
  Sender: PFIZER
  Company Number: US-PFIZER INC-PV202400145152

PATIENT
  Age: 52 Year
  Sex: Female

DRUGS (3)
  1. VELSIPITY [Interacting]
     Active Substance: ETRASIMOD ARGININE
     Dosage: 2 MG, 1X/DAY
  2. LEXAPRO [Interacting]
     Active Substance: ESCITALOPRAM OXALATE
     Dosage: UNK
  3. CENTRUM FEMMES 50+ [Concomitant]

REACTIONS (4)
  - Drug interaction [Unknown]
  - Hypersensitivity [Unknown]
  - Illness [Unknown]
  - Infection [Unknown]
